FAERS Safety Report 4773846-8 (Version None)
Quarter: 2005Q3

REPORT INFORMATION
  Report Type: 
  Country: None (occurrence: None)
  Receive Date: 20050919
  Receipt Date: 20050905
  Transmission Date: 20060218
  Serious: Yes (Hospitalization)
  Sender: FDA-Public Use
  Company Number: GBWYE958507SEP05

PATIENT
  Age: 53 Year
  Sex: Female

DRUGS (6)
  1. EFFEXOR XR [Suspect]
     Indication: DEPRESSION
     Dosage: OVERDOSE AMOUNT UNKNOWN
     Route: 048
     Dates: start: 20050203, end: 20050203
  2. EFFEXOR XR [Suspect]
     Indication: SCHIZOAFFECTIVE DISORDER
     Dosage: OVERDOSE AMOUNT UNKNOWN
     Route: 048
     Dates: start: 20050203, end: 20050203
  3. VALPROATE SODIUM [Concomitant]
  4. DIAZEPAM [Concomitant]
  5. QUETIAPINE FUMARATE [Concomitant]
  6. RISPERIDONE [Concomitant]

REACTIONS (2)
  - INTENTIONAL SELF-INJURY [None]
  - OVERDOSE [None]
